FAERS Safety Report 11429118 (Version 2)
Quarter: 2015Q3

REPORT INFORMATION
  Report Type: Spontaneous
  Country: US (occurrence: JP)
  Receive Date: 20150828
  Receipt Date: 20150915
  Transmission Date: 20151125
  Serious: Yes (Other)
  Sender: FDA-Public Use
  Company Number: JP-CIPLA LTD.-2015JP06876

PATIENT

DRUGS (2)
  1. GEMCITABINE [Suspect]
     Active Substance: GEMCITABINE\GEMCITABINE HYDROCHLORIDE
     Indication: NEOPLASM
     Dosage: 1000 MG/M2 ONCE WEEKLY OVER 30 MIN ON DAYS 1, 8, AND 15 EVERY 28 DAYS CYCLE
     Route: 042
  2. LY2603618 [Suspect]
     Active Substance: RABUSERTIB
     Indication: NEOPLASM
     Dosage: 170 MG OVER 1 H ON DAYS 2, 9, AND 16

REACTIONS (1)
  - Aspartate aminotransferase increased [Recovering/Resolving]
